FAERS Safety Report 15432785 (Version 1)
Quarter: 2018Q3

REPORT INFORMATION
  Report Type: Spontaneous
  Country: US (occurrence: US)
  Receive Date: 20180927
  Receipt Date: 20180927
  Transmission Date: 20181010
  Serious: No
  Sender: FDA-Public Use
  Company Number: US-ASTRAZENECA-2018SF11842

PATIENT
  Sex: Female

DRUGS (1)
  1. SYMBICORT [Suspect]
     Active Substance: BUDESONIDE\FORMOTEROL FUMARATE DIHYDRATE
     Route: 055

REACTIONS (7)
  - Arthritis [Unknown]
  - Visual impairment [Unknown]
  - Insomnia [Unknown]
  - Chronic obstructive pulmonary disease [Unknown]
  - Bronchitis [Unknown]
  - Scoliosis [Unknown]
  - Irritability [Unknown]
